FAERS Safety Report 17839219 (Version 1)
Quarter: 2020Q2

REPORT INFORMATION
  Report Type: Spontaneous
  Country: AU (occurrence: AU)
  Receive Date: 20200529
  Receipt Date: 20200529
  Transmission Date: 20200714
  Serious: Yes (Life-Threatening, Other)
  Sender: FDA-Public Use
  Company Number: AU-AMGEN-AUSSP2020084033

PATIENT
  Age: 50 Year
  Sex: Male

DRUGS (2)
  1. PEGFILGRASTIM [Suspect]
     Active Substance: PEGFILGRASTIM
     Indication: PROPHYLAXIS
     Dosage: UNK
     Route: 058
  2. LENOGRASTIM [Concomitant]
     Active Substance: LENOGRASTIM
     Dosage: UNK UNK, QD
     Route: 058

REACTIONS (1)
  - Anaphylactic reaction [Recovered/Resolved]
